FAERS Safety Report 7774711-4 (Version None)
Quarter: 2011Q3

REPORT INFORMATION
  Report Type: 
  Country: None (occurrence: None)
  Receive Date: 20110923
  Receipt Date: 20110919
  Transmission Date: 20111222
  Serious: Yes (Other)
  Sender: FDA-Public Use
  Company Number: PT-ROCHE-803475

PATIENT
  Age: 50 Year
  Sex: Male

DRUGS (4)
  1. TACROLIMUS [Concomitant]
     Indication: IMMUNOSUPPRESSION
     Dosage: FREQUENCY: ID
  2. PREDNISONE [Concomitant]
     Indication: IMMUNOSUPPRESSION
     Dosage: FREQUENCY: ID
  3. MYCOPHENOLATE MOFETIL [Suspect]
     Indication: IMMUNOSUPPRESSION
     Dosage: FREQUENCY: ID
     Route: 065
  4. MYCOPHENOLATE MOFETIL [Suspect]
     Dosage: DOSAGE REDUCED
     Route: 065

REACTIONS (2)
  - CROHN'S DISEASE [None]
  - GASTROINTESTINAL TOXICITY [None]
